FAERS Safety Report 21380988 (Version 2)
Quarter: 2022Q3

REPORT INFORMATION
  Report Type: Spontaneous
  Country: CL (occurrence: CL)
  Receive Date: 20220927
  Receipt Date: 20220927
  Transmission Date: 20221027
  Serious: Yes (Death, Other)
  Sender: FDA-Public Use
  Company Number: CL-MLMSERVICE-20220909-3782631-1

PATIENT
  Age: 28 Year
  Sex: Female

DRUGS (3)
  1. DOXORUBICIN [Suspect]
     Active Substance: DOXORUBICIN
     Indication: Metastases to peritoneum
     Dosage: 64 MG, CYCLIC, LIPOSOMAL
     Dates: start: 20191004
  2. DOXORUBICIN [Suspect]
     Active Substance: DOXORUBICIN
     Indication: Squamous cell carcinoma
  3. DOXORUBICIN [Suspect]
     Active Substance: DOXORUBICIN
     Indication: Ovarian cancer

REACTIONS (2)
  - Sepsis [Fatal]
  - Pelvic venous thrombosis [Fatal]

NARRATIVE: CASE EVENT DATE: 20190101
